FAERS Safety Report 6716103-2 (Version None)
Quarter: 2010Q2

REPORT INFORMATION
  Report Type: 
  Country: None (occurrence: None)
  Receive Date: 20100507
  Receipt Date: 20100429
  Transmission Date: 20101027
  Serious: Yes (Other)
  Sender: FDA-Public Use
  Company Number: B0651730A

PATIENT
  Age: 36 Year
  Sex: Female

DRUGS (5)
  1. CIPROFLOXACIN [Suspect]
     Indication: URINARY TRACT INFECTION
     Dosage: 500MG TWICE PER DAY
     Route: 048
  2. AMOXICILLIN [Suspect]
  3. GENTAMICIN [Suspect]
  4. CEPHALEXIN [Suspect]
  5. NITROFURANTOIN [Suspect]

REACTIONS (4)
  - ANGIOEDEMA [None]
  - DRUG HYPERSENSITIVITY [None]
  - RASH PRURITIC [None]
  - URTICARIA [None]
